FAERS Safety Report 14713306 (Version 2)
Quarter: 2018Q3

REPORT INFORMATION
  Report Type: Report from Study
  Country: None (occurrence: US)
  Receive Date: 20180404
  Receipt Date: 20180704
  Transmission Date: 20181010
  Serious: Yes (Hospitalization, Other)
  Sender: FDA-Public Use
  Company Number: US-ABBVIE-17K-163-2060155-00

PATIENT
  Age: 71 Year
  Sex: Female

DRUGS (3)
  1. LYRICA [Concomitant]
     Active Substance: PREGABALIN
     Indication: PRODUCT USED FOR UNKNOWN INDICATION
  2. HUMIRA [Suspect]
     Active Substance: ADALIMUMAB
     Route: 058
  3. HUMIRA [Suspect]
     Active Substance: ADALIMUMAB
     Indication: RHEUMATOID ARTHRITIS
     Route: 058
     Dates: start: 2015

REACTIONS (33)
  - Vocal cord paralysis [Not Recovered/Not Resolved]
  - Foot fracture [Recovering/Resolving]
  - Weight decreased [Not Recovered/Not Resolved]
  - Dysphonia [Not Recovered/Not Resolved]
  - Fatigue [Recovered/Resolved]
  - Intestinal obstruction [Not Recovered/Not Resolved]
  - Pulmonary embolism [Recovered/Resolved]
  - Hepatic steatosis [Not Recovered/Not Resolved]
  - Dyspepsia [Not Recovered/Not Resolved]
  - Vomiting [Unknown]
  - Vomiting [Recovered/Resolved]
  - Malaise [Recovering/Resolving]
  - Gait disturbance [Unknown]
  - Tooth loss [Recovering/Resolving]
  - Hypertension [Recovering/Resolving]
  - Malaise [Unknown]
  - Pain [Not Recovered/Not Resolved]
  - Alopecia [Recovering/Resolving]
  - Nausea [Not Recovered/Not Resolved]
  - Thrombosis [Recovered/Resolved]
  - Peripheral swelling [Not Recovered/Not Resolved]
  - Dysstasia [Not Recovered/Not Resolved]
  - Asthenia [Not Recovered/Not Resolved]
  - Clavicle fracture [Recovering/Resolving]
  - Fibromyalgia [Not Recovered/Not Resolved]
  - Stress [Unknown]
  - Fall [Unknown]
  - Muscular weakness [Not Recovered/Not Resolved]
  - Mobility decreased [Unknown]
  - Pain in extremity [Unknown]
  - Coronary artery embolism [Recovered/Resolved]
  - Hypophagia [Not Recovered/Not Resolved]
  - Food intolerance [Unknown]

NARRATIVE: CASE EVENT DATE: 2017
